FAERS Safety Report 8999380 (Version 3)
Quarter: 2013Q1

REPORT INFORMATION
  Report Type: Report from Study
  Country: US (occurrence: US)
  Receive Date: 20130103
  Receipt Date: 20130315
  Transmission Date: 20140127
  Serious: Yes (Life-Threatening, Hospitalization)
  Sender: FDA-Public Use
  Company Number: US-AMGEN-USACT2012083891

PATIENT
  Age: 10 Year
  Sex: Female

DRUGS (7)
  1. PANITUMUMAB [Suspect]
     Indication: NEPHROBLASTOMA
     Dosage: 6 MG/KG, Q2WK
     Route: 042
     Dates: start: 20121214, end: 20121214
  2. MEGACE [Concomitant]
     Dosage: 1 ML, BID
     Route: 048
     Dates: start: 201211
  3. IBUPROFEN [Concomitant]
     Dosage: 100 MG, AS NECESSARY
     Route: 048
     Dates: start: 20121217
  4. AMOXICILLIN [Concomitant]
     Dosage: UNK UNK, BID
     Route: 048
     Dates: start: 20121217, end: 20121224
  5. TAMIFLU [Concomitant]
     Dosage: 60 MG, BID
     Route: 048
     Dates: start: 20121218, end: 20121223
  6. PEPCID [Concomitant]
     Dosage: UNK UNK, AS NECESSARY
     Route: 048
     Dates: start: 201101
  7. PHENERGAN [Concomitant]
     Dosage: UNK UNK, AS NECESSARY
     Route: 048
     Dates: start: 20121223

REACTIONS (1)
  - Central nervous system haemorrhage [Recovered/Resolved]
